FAERS Safety Report 7709728-9 (Version None)
Quarter: 2011Q3

REPORT INFORMATION
  Report Type: 
  Country: None (occurrence: None)
  Receive Date: 20110825
  Receipt Date: 20110817
  Transmission Date: 20111222
  Serious: Yes (Life-Threatening, Hospitalization)
  Sender: FDA-Public Use
  Company Number: US-CELGENEUS-163-21880-11063520

PATIENT
  Sex: Female
  Weight: 81.72 kg

DRUGS (9)
  1. AMLODIPINE [Concomitant]
     Indication: HYPERTENSION
     Dosage: 5 MILLIGRAM
     Route: 048
  2. METOPROLOL [Concomitant]
     Indication: HYPERTENSION
     Dosage: 12.5 MILLIGRAM
     Route: 048
  3. LORAZEPAM [Concomitant]
     Indication: ANXIETY
     Dosage: .5 MILLIGRAM
     Route: 048
  4. LASIX [Concomitant]
     Dosage: 60 MILLIGRAM
     Route: 048
  5. KLOR-CON [Concomitant]
     Dosage: 10 MILLIEQUIVALENTS
     Route: 048
  6. REVLIMID [Suspect]
     Indication: MULTIPLE MYELOMA
     Dosage: 25 MILLIGRAM
     Route: 048
     Dates: start: 20101207, end: 20110101
  7. LASIX [Concomitant]
     Indication: SWELLING FACE
     Dosage: 20 MILLIGRAM
     Route: 048
  8. SOLIFENACIN SUCCINATE [Concomitant]
     Dosage: 5 MILLIGRAM
     Route: 048
  9. LASIX [Concomitant]
     Dosage: 40 MILLIGRAM
     Route: 041

REACTIONS (5)
  - OEDEMA PERIPHERAL [None]
  - CARDIAC FAILURE CONGESTIVE [None]
  - DEEP VEIN THROMBOSIS [None]
  - BALANCE DISORDER [None]
  - SWELLING FACE [None]
